FAERS Safety Report 6592921-9 (Version None)
Quarter: 2010Q1

REPORT INFORMATION
  Report Type: 
  Country: None (occurrence: None)
  Receive Date: 20100218
  Receipt Date: 20100218
  Transmission Date: 20100710
  Serious: Yes (Death)
  Sender: FDA-Public Use
  Company Number: None

PATIENT
  Sex: Female

DRUGS (1)
  1. SYNAGIS [Suspect]
     Dosage: 15 MG/KG Q MONTH IM
     Route: 030
     Dates: start: 20091201, end: 20100101

REACTIONS (1)
  - DEATH [None]
